FAERS Safety Report 26145255 (Version 1)
Quarter: 2025Q4

REPORT INFORMATION
  Report Type: Spontaneous
  Country: US (occurrence: US)
  Receive Date: 20251211
  Receipt Date: 20251211
  Transmission Date: 20260117
  Serious: No
  Sender: BAYER HEALTHCARE LLC
  Company Number: US-BAYER-2025A161829

PATIENT
  Age: 65 Year
  Sex: Female
  Weight: 67.9 kg

DRUGS (35)
  1. MIRALAX [Suspect]
     Active Substance: POLYETHYLENE GLYCOL 3350
     Indication: Constipation
  2. MIRALAX [Suspect]
     Active Substance: POLYETHYLENE GLYCOL 3350
     Indication: Faeces hard
  3. TREPROSTINIL [Suspect]
     Active Substance: TREPROSTINIL
     Indication: Pulmonary arterial hypertension
     Dosage: 64 ? QID INHALATION
  4. TREPROSTINIL [Suspect]
     Active Substance: TREPROSTINIL
     Indication: Pulmonary arterial hypertension
     Dosage: UNK
     Dates: start: 20230119
  5. TYVASO DPI [Suspect]
     Active Substance: TREPROSTINIL
     Indication: Pulmonary arterial hypertension
     Dosage: INHALATION
  6. HERBALS [Concomitant]
     Active Substance: HERBALS
  7. TYLENOL [Concomitant]
     Active Substance: ACETAMINOPHEN
  8. REYVOW [Concomitant]
     Active Substance: LASMIDITAN
  9. TOPAMAX [Concomitant]
     Active Substance: TOPIRAMATE
  10. SINGULAIR [Concomitant]
     Active Substance: MONTELUKAST SODIUM
  11. DICLOFENAC POTASSIUM [Concomitant]
     Active Substance: DICLOFENAC POTASSIUM
  12. TIZANIDINE HYDROCHLORIDE [Concomitant]
     Active Substance: TIZANIDINE HYDROCHLORIDE
  13. LASIX [Concomitant]
     Active Substance: FUROSEMIDE
  14. BOTOX [Concomitant]
     Active Substance: ONABOTULINUMTOXINA
  15. MAGNESIUM [Concomitant]
     Active Substance: MAGNESIUM
  16. PROTONIX [Concomitant]
     Active Substance: PANTOPRAZOLE SODIUM
  17. NORTRIPTYLINE HYDROCHLORIDE [Concomitant]
     Active Substance: NORTRIPTYLINE HYDROCHLORIDE
  18. SUCRALFATE [Concomitant]
     Active Substance: SUCRALFATE
  19. PENICILLIN V POTASSIUM [Concomitant]
     Active Substance: PENICILLIN V POTASSIUM
  20. Brompheniramine maleate, pseudoephedrine hcl, dextromethorphan hyd [Concomitant]
  21. CHLORPHENIRAMINE MALEATE [Concomitant]
     Active Substance: CHLORPHENIRAMINE MALEATE
  22. OPSUMIT [Concomitant]
     Active Substance: MACITENTAN
  23. WINREVAIR [Concomitant]
     Active Substance: SOTATERCEPT-CSRK
  24. VITAMINS [Concomitant]
     Active Substance: VITAMINS
  25. OXYGEN [Concomitant]
     Active Substance: OXYGEN
  26. RISPERIDONE [Concomitant]
     Active Substance: RISPERIDONE
  27. SPIRONOLACTONE [Concomitant]
     Active Substance: SPIRONOLACTONE
  28. FAMOTIDINE [Concomitant]
     Active Substance: FAMOTIDINE
  29. WELLBUTRIN XL [Concomitant]
     Active Substance: BUPROPION HYDROCHLORIDE
  30. DIGOXIN [Concomitant]
     Active Substance: DIGOXIN
  31. QULIPTA [Concomitant]
     Active Substance: ATOGEPANT
  32. DEPAKOTE [Concomitant]
     Active Substance: DIVALPROEX SODIUM
  33. EMGALITY [Concomitant]
     Active Substance: GALCANEZUMAB-GNLM
  34. ROSUVASTATIN CALCIUM [Concomitant]
     Active Substance: ROSUVASTATIN CALCIUM
  35. ONDANSETRON HYDROCHLORIDE [Concomitant]
     Active Substance: ONDANSETRON HYDROCHLORIDE

REACTIONS (1)
  - Diarrhoea [Unknown]
